FAERS Safety Report 7402755-0 (Version None)
Quarter: 2011Q2

REPORT INFORMATION
  Report Type: 
  Country: None (occurrence: None)
  Receive Date: 20110408
  Receipt Date: 20110405
  Transmission Date: 20111010
  Serious: Yes (Hospitalization)
  Sender: FDA-Public Use
  Company Number: CA-ROCHE-768288

PATIENT
  Sex: Female
  Weight: 135 kg

DRUGS (10)
  1. NASONEX [Concomitant]
  2. CYCLOPHOSPHAMIDE [Concomitant]
     Indication: CHEMOTHERAPY
     Dosage: FREQUENCY: 04 TREATMENTS, EVERY TWO WEEKS
     Dates: start: 20100812
  3. NEUPOGEN [Concomitant]
  4. DIPHENHYDRAMINE HYDROCHLORIDE [Concomitant]
     Indication: PREMEDICATION
     Route: 048
     Dates: start: 20110316, end: 20110316
  5. BEVACIZUMAB [Suspect]
     Indication: BREAST CANCER
     Route: 042
     Dates: start: 20110203, end: 20110316
  6. ACETAMINOPHEN [Concomitant]
     Indication: PREMEDICATION
     Route: 048
     Dates: start: 20110316, end: 20110316
  7. ADRIAMYCIN PFS [Concomitant]
     Indication: CHEMOTHERAPY
     Dosage: FREQUENCY: 04 TREATMENTS, EVERY TWO WEEKS
     Dates: start: 20100812
  8. CALCIUM [Concomitant]
  9. SYMBICORT [Concomitant]
  10. METHYLPREDNISOLONE [Concomitant]
     Dosage: FREQUENCY: ONCE; INDICATION: AVASTIN PRE-MEDICATION
     Route: 042
     Dates: start: 20110316, end: 20110316

REACTIONS (3)
  - DEEP VEIN THROMBOSIS [None]
  - PULMONARY EMBOLISM [None]
  - DEVICE OCCLUSION [None]
